FAERS Safety Report 12427234 (Version 1)
Quarter: 2016Q2

REPORT INFORMATION
  Report Type: Report from Study
  Country: PH (occurrence: PH)
  Receive Date: 20160602
  Receipt Date: 20160602
  Transmission Date: 20160815
  Serious: Yes (Death, Other)
  Sender: FDA-Public Use
  Company Number: PH-009507513-1605PHL014069

PATIENT
  Age: 71 Year
  Sex: Female

DRUGS (2)
  1. SITAGLIPTIN PHOSPHATE [Suspect]
     Active Substance: SITAGLIPTIN PHOSPHATE
     Indication: DIABETES MELLITUS
     Dosage: 25 MG, QD (1 TABLET ONCE A DAY)
     Route: 048
     Dates: start: 201406
  2. INSULIN NOVOMIX 30 [Concomitant]

REACTIONS (1)
  - Cardiac arrest [Fatal]
